FAERS Safety Report 8202502-9 (Version None)
Quarter: 2012Q1

REPORT INFORMATION
  Report Type: 
  Country: None (occurrence: None)
  Receive Date: 20120312
  Receipt Date: 20120302
  Transmission Date: 20120608
  Serious: Yes (Death)
  Sender: FDA-Public Use
  Company Number: US-JNJFOC-20120302382

PATIENT
  Sex: Female
  Weight: 149.69 kg

DRUGS (2)
  1. INFLIXIMAB, RECOMBINANT [Suspect]
     Indication: PSORIASIS
     Route: 042
     Dates: start: 20080530
  2. ALL OTHER MEDICATIONS [Concomitant]
     Dates: start: 20080530

REACTIONS (1)
  - PULMONARY EMBOLISM [None]
